FAERS Safety Report 15736072 (Version 1)
Quarter: 2018Q4

REPORT INFORMATION
  Report Type: Spontaneous
  Country: SE (occurrence: SE)
  Receive Date: 20181218
  Receipt Date: 20181218
  Transmission Date: 20190205
  Serious: Yes (Other)
  Sender: FDA-Public Use
  Company Number: SE-TEVA-2018-SE-988722

PATIENT
  Age: 72 Year
  Sex: Female

DRUGS (8)
  1. TROMBYL [Concomitant]
     Active Substance: ASPIRIN
  2. ALENDRONAT [Suspect]
     Active Substance: ALENDRONATE SODIUM
     Indication: OSTEOPOROSIS
     Route: 048
     Dates: start: 2012, end: 20181120
  3. CALCICHEW [Concomitant]
     Active Substance: CALCIUM CARBONATE
  4. FELODIPIN [Concomitant]
     Active Substance: FELODIPINE
  5. PLENDIL [Concomitant]
     Active Substance: FELODIPINE
  6. CRESTOR [Concomitant]
     Active Substance: ROSUVASTATIN CALCIUM
  7. CARVEDIOL [Concomitant]
     Active Substance: CARVEDILOL
  8. SALURES [Concomitant]
     Active Substance: BENDROFLUMETHIAZIDE

REACTIONS (1)
  - Osteonecrosis [Not Recovered/Not Resolved]

NARRATIVE: CASE EVENT DATE: 20181123
